FAERS Safety Report 12265014 (Version 1)
Quarter: 2016Q2

REPORT INFORMATION
  Report Type: Spontaneous
  Country: GB (occurrence: GB)
  Receive Date: 20160413
  Receipt Date: 20160413
  Transmission Date: 20160815
  Serious: Yes (Disabling, Other)
  Sender: FDA-Public Use
  Company Number: GB-BAYER-2016-069831

PATIENT
  Age: 19 Year
  Sex: Female
  Weight: 50.8 kg

DRUGS (10)
  1. MULTIVITAMINS W/MINERALS [Concomitant]
     Active Substance: MINERALS\VITAMINS
  2. PARACETAMOL [Concomitant]
     Active Substance: ACETAMINOPHEN
  3. MIRENA [Suspect]
     Active Substance: LEVONORGESTREL
     Indication: MENORRHAGIA
  4. TRIMETHOPRIM. [Concomitant]
     Active Substance: TRIMETHOPRIM
  5. PEPPERMINT OIL [Concomitant]
     Active Substance: PEPPERMINT OIL
  6. HYDROCORTISONE [HYDROCORTISONE] [Concomitant]
     Dosage: LONGTERM THERAPY
  7. IBUPROFEN. [Concomitant]
     Active Substance: IBUPROFEN
  8. MIRENA [Suspect]
     Active Substance: LEVONORGESTREL
     Indication: CONTRACEPTION
     Dosage: 20 MCG/24HR, CONT
     Route: 015
     Dates: start: 20150424, end: 20160218
  9. NEDOCROMIL [Concomitant]
     Active Substance: NEDOCROMIL
  10. CETIRIZINE HYDROCHLORIDE. [Concomitant]
     Active Substance: CETIRIZINE HYDROCHLORIDE

REACTIONS (7)
  - Dizziness [Recovered/Resolved]
  - Respiratory fatigue [Recovering/Resolving]
  - Abdominal pain upper [Recovering/Resolving]
  - Urinary tract infection [Recovered/Resolved with Sequelae]
  - Urinary incontinence [Recovered/Resolved with Sequelae]
  - Functional gastrointestinal disorder [Recovered/Resolved]
  - Muscle fatigue [Recovered/Resolved]

NARRATIVE: CASE EVENT DATE: 20150430
